FAERS Safety Report 4388436-9 (Version None)
Quarter: 2004Q2

REPORT INFORMATION
  Report Type: 
  Country: None (occurrence: None)
  Receive Date: 20040625
  Receipt Date: 20040609
  Transmission Date: 20050107
  Serious: Yes (Hospitalization)
  Sender: FDA-Public Use
  Company Number: HQWYE439914JUN04

PATIENT
  Age: 47 Year
  Sex: Male

DRUGS (7)
  1. RAPAMUNE [Suspect]
     Indication: LUNG TRANSPLANT
     Dosage: SEE IMAGE
     Route: 048
     Dates: start: 20020101, end: 20020101
  2. RAPAMUNE [Suspect]
     Indication: LUNG TRANSPLANT
     Dosage: SEE IMAGE
     Route: 048
     Dates: start: 20020101
  3. RAPAMUNE [Suspect]
     Indication: LUNG TRANSPLANT
     Dosage: SEE IMAGE
     Route: 048
     Dates: start: 20020101
  4. PREDNISONE TAB [Suspect]
     Indication: IMMUNOSUPPRESSANT DRUG THERAPY
     Dosage: 0.5 MG/KG 1X PER 1 DAY
     Route: 048
     Dates: start: 20020101
  5. PROGRAF [Suspect]
     Indication: IMMUNOSUPPRESSANT DRUG THERAPY
     Dosage: 1 MG 2X PER 1 DAY
     Route: 048
     Dates: start: 20020101
  6. METHYLPREDNISOLONE [Concomitant]
  7. CEFTAZIDIME SODIUM [Concomitant]

REACTIONS (4)
  - DYSPNOEA [None]
  - IMPAIRED HEALING [None]
  - NECROSIS [None]
  - PSEUDOMONAS INFECTION [None]
